FAERS Safety Report 21418368 (Version 6)
Quarter: 2023Q1

REPORT INFORMATION
  Report Type: Report from Study
  Country: US (occurrence: US)
  Receive Date: 20221006
  Receipt Date: 20230201
  Transmission Date: 20230418
  Serious: Yes (Hospitalization)
  Sender: FDA-Public Use
  Company Number: US-ABBVIE-4140360

PATIENT
  Age: 84 Year
  Sex: Female

DRUGS (3)
  1. IMBRUVICA [Suspect]
     Active Substance: IBRUTINIB
     Indication: Chronic lymphocytic leukaemia
     Route: 048
     Dates: start: 202209, end: 202209
  2. IMBRUVICA [Suspect]
     Active Substance: IBRUTINIB
     Indication: Chronic lymphocytic leukaemia
     Dosage: TIME INTERVAL: 0.33333333 DAYS
     Route: 048
     Dates: start: 202209
  3. XANAX [Suspect]
     Active Substance: ALPRAZOLAM
     Indication: Product used for unknown indication
     Route: 065

REACTIONS (12)
  - Arthritis [Unknown]
  - Emotional disorder [Unknown]
  - Pain [Unknown]
  - Fatigue [Unknown]
  - Mobility decreased [Unknown]
  - COVID-19 [Unknown]
  - Gait inability [Unknown]
  - Impaired work ability [Unknown]
  - Dizziness [Unknown]
  - Tremor [Unknown]
  - Pain in extremity [Unknown]
  - Feeling abnormal [Unknown]

NARRATIVE: CASE EVENT DATE: 20221001
